FAERS Safety Report 7434047-8 (Version None)
Quarter: 2011Q2

REPORT INFORMATION
  Report Type: 
  Country: None (occurrence: None)
  Receive Date: 20110421
  Receipt Date: 20110421
  Transmission Date: 20111010
  Serious: Yes (Hospitalization)
  Sender: FDA-Public Use
  Company Number: None

PATIENT
  Age: 19 Year
  Sex: Male
  Weight: 90.7194 kg

DRUGS (1)
  1. LORAZEPAM [Suspect]
     Indication: ANXIETY
     Dosage: .5 MG 2 TABLETS BID

REACTIONS (4)
  - ANXIETY [None]
  - PRODUCT COUNTERFEIT [None]
  - PRODUCT QUALITY ISSUE [None]
  - DRUG LEVEL DECREASED [None]
